FAERS Safety Report 15189525 (Version 1)
Quarter: 2018Q3

REPORT INFORMATION
  Report Type: Spontaneous
  Country: DK (occurrence: DK)
  Receive Date: 20180724
  Receipt Date: 20180724
  Transmission Date: 20181010
  Serious: Yes (Hospitalization)
  Sender: FDA-Public Use
  Company Number: PHHY2018DK051398

PATIENT
  Age: 84 Year
  Sex: Female

DRUGS (5)
  1. HJERTEMAGNYL [Concomitant]
     Active Substance: ASPIRIN\MAGNESIUM OXIDE
     Indication: ANTICOAGULANT THERAPY
     Dosage: 75 MG, QD (STYRKE: 75 MG.)
     Route: 048
     Dates: start: 20130626
  2. METOPROLOL SUCCINATE. [Concomitant]
     Active Substance: METOPROLOL SUCCINATE
     Indication: HYPERTENSION
     Dosage: DOSIS: 2+0+1+0.STYRKE: 50 MG.
     Route: 048
  3. PAMOL [Concomitant]
     Active Substance: ACETAMINOPHEN
     Indication: PAIN
     Dosage: DOSIS: 2 TABLETTER EFTER BEHOV, H?JST 4 GANGE DAGLIGT.STYRKE: 500 MG.
     Route: 048
     Dates: start: 20140904
  4. VAGIFEM [Concomitant]
     Active Substance: ESTRADIOL
     Indication: HORMONE THERAPY
     Dosage: 20 UG, QD
     Route: 067
     Dates: start: 20131211
  5. ANCOZAN COMP [Suspect]
     Active Substance: HYDROCHLOROTHIAZIDE\LOSARTAN POTASSIUM
     Indication: HYPERTENSION
     Dosage: 1 U/L, QD (STYRKE: 100 + 25 MG)
     Route: 048
     Dates: start: 20130912, end: 20180502

REACTIONS (5)
  - Dizziness postural [Recovering/Resolving]
  - Dizziness [Recovering/Resolving]
  - Hypotension [Unknown]
  - Syncope [Unknown]
  - Hyponatraemia [Recovering/Resolving]

NARRATIVE: CASE EVENT DATE: 2018
